FAERS Safety Report 13904330 (Version 1)
Quarter: 2017Q3

REPORT INFORMATION
  Report Type: Spontaneous
  Country: US (occurrence: None)
  Receive Date: 20170824
  Receipt Date: 20170824
  Transmission Date: 20171127
  Serious: Yes (Life-Threatening)
  Sender: FDA-Public Use
  Company Number: None

PATIENT
  Age: 63 Year
  Sex: Male
  Weight: 85.9 kg

DRUGS (1)
  1. ISOVUE 370 [Suspect]
     Active Substance: IOPAMIDOL
     Indication: CATHETERISATION CARDIAC
     Route: 042
     Dates: start: 20170808

REACTIONS (6)
  - Flushing [None]
  - Hypotension [None]
  - Urticaria [None]
  - Dyspnoea [None]
  - Respiratory failure [None]
  - Agitation [None]

NARRATIVE: CASE EVENT DATE: 20170807
